FAERS Safety Report 14304079 (Version 1)
Quarter: 2017Q4

REPORT INFORMATION
  Report Type: Spontaneous
  Country: IT (occurrence: IT)
  Receive Date: 20171219
  Receipt Date: 20171219
  Transmission Date: 20180321
  Serious: Yes (Death, Other)
  Sender: FDA-Public Use
  Company Number: IT-OTSUKA-DJ20081477

PATIENT
  Age: 28 Year
  Sex: Male
  Weight: 111 kg

DRUGS (2)
  1. ABILIFY [Suspect]
     Active Substance: ARIPIPRAZOLE
     Indication: SCHIZOPHRENIA
     Dosage: UNK
     Route: 048
     Dates: start: 2007, end: 2007
  2. ABILIFY [Suspect]
     Active Substance: ARIPIPRAZOLE
     Route: 048
     Dates: start: 20080401, end: 20080505

REACTIONS (2)
  - Cardiac arrest [Fatal]
  - Somnolence [Unknown]

NARRATIVE: CASE EVENT DATE: 20080505
